FAERS Safety Report 6139076-2 (Version None)
Quarter: 2009Q1

REPORT INFORMATION
  Report Type: 
  Country: None (occurrence: None)
  Receive Date: 20090324
  Receipt Date: 20090323
  Transmission Date: 20090719
  Serious: Yes (Death)
  Sender: FDA-Public Use
  Company Number: 2009AL001719

PATIENT
  Age: 53 Year
  Sex: Female

DRUGS (1)
  1. DIGOXIN [Suspect]
     Dosage: 0.125MG, QD, PO
     Route: 048
     Dates: end: 20080430

REACTIONS (1)
  - MYOCARDIAL INFARCTION [None]
